FAERS Safety Report 12804490 (Version 1)
Quarter: 2016Q4

REPORT INFORMATION
  Report Type: Spontaneous
  Country: PR (occurrence: PR)
  Receive Date: 20161003
  Receipt Date: 20161003
  Transmission Date: 20170207
  Serious: No
  Sender: FDA-Public Use
  Company Number: PR-PFIZER INC-2016460585

PATIENT
  Age: 66 Year
  Sex: Female
  Weight: 47.17 kg

DRUGS (2)
  1. ZANTAC [Concomitant]
     Active Substance: RANITIDINE HYDROCHLORIDE
     Indication: DYSPEPSIA
     Dosage: 150 MG, UNK
     Route: 048
  2. IBRANCE [Suspect]
     Active Substance: PALBOCICLIB
     Indication: COLORECTAL CANCER
     Dosage: 125 MG, 1X/DAY
     Route: 048
     Dates: start: 20110831

REACTIONS (2)
  - Product use issue [Unknown]
  - Haemoglobin decreased [Unknown]
